FAERS Safety Report 10128548 (Version 1)
Quarter: 2014Q2

REPORT INFORMATION
  Report Type: Spontaneous
  Country: AU (occurrence: AU)
  Receive Date: 20140428
  Receipt Date: 20140428
  Transmission Date: 20141212
  Serious: Yes (Other)
  Sender: FDA-Public Use
  Company Number: AU-ROCHE-1385737

PATIENT
  Age: 53 Year
  Sex: Male
  Weight: 84 kg

DRUGS (7)
  1. VARENICLINE TARTRATE [Suspect]
     Indication: EX-TOBACCO USER
     Route: 065
     Dates: start: 20131007, end: 20131231
  2. BUPROPION [Suspect]
     Indication: EX-TOBACCO USER
     Route: 065
     Dates: start: 20131007, end: 20131231
  3. NICOTINE [Suspect]
     Indication: EX-TOBACCO USER
     Route: 065
     Dates: start: 20131007, end: 20131231
  4. OLANZAPINE [Suspect]
     Indication: SCHIZOPHRENIA
     Route: 048
     Dates: start: 2012
  5. DIAZEPAM [Suspect]
     Indication: SCHIZOPHRENIA
     Route: 048
     Dates: end: 2012
  6. CYMBALTA [Suspect]
     Indication: SCHIZOPHRENIA
     Route: 048
  7. ROSUVASTATIN [Suspect]
     Indication: DYSLIPIDAEMIA
     Route: 048
     Dates: start: 2003

REACTIONS (1)
  - Liver function test abnormal [Recovering/Resolving]
